FAERS Safety Report 23792620 (Version 1)
Quarter: 2024Q2

REPORT INFORMATION
  Report Type: Spontaneous
  Country: AU (occurrence: AU)
  Receive Date: 20240429
  Receipt Date: 20240429
  Transmission Date: 20240716
  Serious: Yes (Disabling, Other)
  Sender: FDA-Public Use
  Company Number: AU-JNJFOC-20240265921

PATIENT
  Age: 3 Month
  Sex: Male
  Weight: 0.943 kg

DRUGS (10)
  1. CLOFAZIMINE [Suspect]
     Active Substance: CLOFAZIMINE
     Indication: Congenital tuberculosis
     Dosage: 5 MG/KG, QD, SUSPENSION
     Route: 048
     Dates: start: 20220330, end: 20221104
  2. BEDAQUILINE [Suspect]
     Active Substance: BEDAQUILINE
     Indication: Congenital tuberculosis
     Dosage: 30 MG, QD
     Route: 048
     Dates: start: 20220414
  3. BEDAQUILINE [Suspect]
     Active Substance: BEDAQUILINE
     Dosage: 10 MG, QD
     Route: 065
     Dates: start: 20220428
  4. BEDAQUILINE [Suspect]
     Active Substance: BEDAQUILINE
     Dosage: 20 MG, Q3W, 1 TIME EVERY 3 WEEKS
     Route: 065
     Dates: start: 20220627, end: 20230215
  5. DELAMANID [Suspect]
     Active Substance: DELAMANID
     Indication: Congenital tuberculosis
     Dosage: 12.5 MG, QD
     Route: 048
     Dates: start: 20220218, end: 20220413
  6. DELAMANID [Suspect]
     Active Substance: DELAMANID
     Dosage: 25 MG, QD
     Route: 065
     Dates: start: 20220414, end: 20220614
  7. DELAMANID [Suspect]
     Active Substance: DELAMANID
     Dosage: 50 MG
     Route: 065
     Dates: start: 20220615, end: 20230215
  8. LINEZOLID [Suspect]
     Active Substance: LINEZOLID
     Indication: Congenital tuberculosis
     Dosage: 15 MG/KG
     Route: 065
     Dates: start: 20220202, end: 20220410
  9. LINEZOLID [Suspect]
     Active Substance: LINEZOLID
     Dosage: 20 MG/KG
     Route: 065
     Dates: start: 20220411, end: 20220703
  10. LINEZOLID [Suspect]
     Active Substance: LINEZOLID
     Dosage: 15 MG/KG
     Route: 065
     Dates: start: 20221216, end: 20230215

REACTIONS (6)
  - Deafness neurosensory [Unknown]
  - Product use issue [Unknown]
  - Vomiting [Unknown]
  - Weight decreased [Unknown]
  - Weight gain poor [Unknown]
  - Off label use [Unknown]

NARRATIVE: CASE EVENT DATE: 20220521
